FAERS Safety Report 8784666 (Version 2)
Quarter: 2012Q4

REPORT INFORMATION
  Report Type: Spontaneous
  Country: US (occurrence: None)
  Receive Date: 20120830
  Receipt Date: 20120907
  Transmission Date: 20130627
  Serious: Yes (Other)
  Sender: FDA-Public Use
  Company Number: 201208061

PATIENT
  Age: 81 Year
  Sex: Male

DRUGS (2)
  1. XIAFLEX [Suspect]
     Indication: DUPUYTREN^S CONTRACTURE
     Dosage: 1 in 1 D, Intralesional
     Dates: start: 20120823, end: 20120823
  2. TYLENOL (PARACETAMOL) [Concomitant]

REACTIONS (3)
  - Arterial rupture [None]
  - Skin graft [None]
  - Laceration [None]
